FAERS Safety Report 25831120 (Version 1)
Quarter: 2025Q3

REPORT INFORMATION
  Report Type: Spontaneous
  Country: US (occurrence: US)
  Receive Date: 20250922
  Receipt Date: 20250922
  Transmission Date: 20251021
  Serious: Yes (Other)
  Sender: EMD SERONO INC
  Company Number: US-Merck Healthcare KGaA-2025046916

PATIENT
  Sex: Female

DRUGS (2)
  1. MAVENCLAD [Suspect]
     Active Substance: CLADRIBINE
     Indication: Multiple sclerosis
     Dosage: FIRST YEAR FIRST MONTH THERAPY?FROM 14-FEB (YEAR UNSPECIFIED) TO 17-FEB (YEAR UNSPECIFIED)
  2. MAVENCLAD [Suspect]
     Active Substance: CLADRIBINE
     Dosage: FIRST YEAR SECOND MONTH THERAPY?FROM 14-MAR (YEAR UNSPECIFIED) TO 17-MAR (YEAR UNSPECIFIED)

REACTIONS (3)
  - Weight decreased [Unknown]
  - Gait disturbance [Unknown]
  - Pain in extremity [Unknown]
